FAERS Safety Report 6252355-3 (Version None)
Quarter: 2009Q2

REPORT INFORMATION
  Report Type: 
  Country: None (occurrence: None)
  Receive Date: 20090629
  Receipt Date: 20090629
  Transmission Date: 20091009
  Serious: Yes (Life-Threatening, Hospitalization, Other)
  Sender: FDA-Public Use
  Company Number: None

PATIENT
  Sex: Male
  Weight: 97.5234 kg

DRUGS (2)
  1. LAMOTRIGINE [Suspect]
     Indication: CONVULSION
     Dosage: 200 BID PO
     Route: 048
     Dates: start: 20040317
  2. LAMOTRIGINE [Suspect]
     Indication: CONVULSION
     Dosage: 200 BID PO
     Route: 048
     Dates: start: 20090616

REACTIONS (2)
  - PRODUCT SUBSTITUTION ISSUE [None]
  - TONIC CLONIC MOVEMENTS [None]
